FAERS Safety Report 5331931-6 (Version None)
Quarter: 2007Q2

REPORT INFORMATION
  Report Type: 
  Country: None (occurrence: None)
  Receive Date: 20070523
  Receipt Date: 20070517
  Transmission Date: 20071010
  Serious: Yes (Death)
  Sender: FDA-Public Use
  Company Number: IL-NOVOPROD-263766

PATIENT
  Age: 28 Year
  Sex: Male

DRUGS (1)
  1. NOVOSEVEN [Suspect]
     Indication: HAEMORRHAGE
     Dosage: 9.6 MG, UNK
     Route: 042
     Dates: start: 20070503

REACTIONS (2)
  - DEATH [None]
  - THROMBOSIS [None]
